FAERS Safety Report 10749240 (Version 2)
Quarter: 2015Q4

REPORT INFORMATION
  Report Type: Report from Study
  Country: BR (occurrence: BR)
  Receive Date: 20150129
  Receipt Date: 20151020
  Transmission Date: 20160304
  Serious: Yes (Other)
  Sender: FDA-Public Use
  Company Number: BR-ABBVIE-15K-020-1337580-00

PATIENT
  Sex: Female

DRUGS (1)
  1. HUMIRA [Suspect]
     Active Substance: ADALIMUMAB
     Indication: RHEUMATOID ARTHRITIS
     Route: 058
     Dates: start: 20100201, end: 201410

REACTIONS (4)
  - Arthralgia [Not Recovered/Not Resolved]
  - Tuberculosis [Recovered/Resolved]
  - Vomiting [Unknown]
  - Catarrh [Recovered/Resolved]

NARRATIVE: CASE EVENT DATE: 2014
